FAERS Safety Report 12431671 (Version 1)
Quarter: 2016Q2

REPORT INFORMATION
  Report Type: Spontaneous
  Country: US (occurrence: None)
  Receive Date: 20160602
  Receipt Date: 20160602
  Transmission Date: 20160815
  Serious: No
  Sender: FDA-Public Use
  Company Number: None

PATIENT
  Age: 32 Year
  Sex: Female

DRUGS (1)
  1. METHYLPREDNISOLONE TABLETS USP, 4 MG CADISTA [Suspect]
     Active Substance: METHYLPREDNISOLONE
     Indication: DERMATITIS CONTACT
     Dosage: 21 TABLET(S) AS PRESCRIBED TAKEN BY MOUTH
     Route: 048
     Dates: start: 20160526, end: 20160531

REACTIONS (7)
  - Insomnia [None]
  - Diarrhoea [None]
  - Pollakiuria [None]
  - Rash [None]
  - Body temperature abnormal [None]
  - Dry mouth [None]
  - Restlessness [None]

NARRATIVE: CASE EVENT DATE: 20160527
